FAERS Safety Report 18221299 (Version 1)
Quarter: 2020Q3

REPORT INFORMATION
  Report Type: Spontaneous
  Country: DE (occurrence: DE)
  Receive Date: 20200902
  Receipt Date: 20200902
  Transmission Date: 20201103
  Serious: Yes (Hospitalization, Other)
  Sender: FDA-Public Use
  Company Number: PHHY2017DE202597

PATIENT
  Age: 63 Year
  Sex: Female

DRUGS (4)
  1. ADALIMUMAB [Suspect]
     Active Substance: ADALIMUMAB
     Indication: RHEUMATOID ARTHRITIS
     Dosage: 40 MG
     Route: 065
     Dates: start: 201512, end: 201605
  2. RITUXIMAB. [Suspect]
     Active Substance: RITUXIMAB
     Route: 065
     Dates: start: 201605
  3. TOCILIZUMAB. [Suspect]
     Active Substance: TOCILIZUMAB
     Indication: RHEUMATOID ARTHRITIS
     Dosage: 162 MG
     Route: 065
     Dates: start: 201509, end: 201512
  4. RITUXIMAB. [Suspect]
     Active Substance: RITUXIMAB
     Indication: RHEUMATOID ARTHRITIS
     Dosage: UNK
     Route: 065

REACTIONS (6)
  - Coronary artery disease [Unknown]
  - Candida infection [Unknown]
  - Device dislocation [Not Recovered/Not Resolved]
  - Abscess [Unknown]
  - Oral candidiasis [Not Recovered/Not Resolved]
  - Influenza like illness [Unknown]

NARRATIVE: CASE EVENT DATE: 20161115
